FAERS Safety Report 10509346 (Version 1)
Quarter: 2014Q4

REPORT INFORMATION
  Report Type: Spontaneous
  Country: CH (occurrence: CH)
  Receive Date: 20141009
  Receipt Date: 20141009
  Transmission Date: 20150528
  Serious: Yes (Other)
  Sender: FDA-Public Use
  Company Number: CH-ASTRAZENECA-2014SE73706

PATIENT
  Age: 59 Year
  Sex: Male

DRUGS (12)
  1. MAGNESIUM [Concomitant]
     Active Substance: MAGNESIUM
     Route: 065
  2. NEXIUM [Suspect]
     Active Substance: ESOMEPRAZOLE MAGNESIUM
     Route: 048
  3. CRESTOR [Concomitant]
     Active Substance: ROSUVASTATIN CALCIUM
     Route: 048
  4. EXFORGE HCT [Suspect]
     Active Substance: AMLODIPINE BESYLATE\HYDROCHLOROTHIAZIDE\VALSARTAN
     Indication: HYPERTENSION
     Route: 048
  5. COSOPT [Concomitant]
     Active Substance: DORZOLAMIDE HYDROCHLORIDE\TIMOLOL MALEATE
     Route: 047
  6. ASPIRINE [Concomitant]
     Active Substance: ASPIRIN
     Route: 048
  7. VIDEIN [Concomitant]
     Route: 065
  8. RAPAMUNE [Suspect]
     Active Substance: SIROLIMUS
     Indication: HEART TRANSPLANT
     Route: 048
     Dates: start: 201302
  9. EZETROL [Concomitant]
     Active Substance: EZETIMIBE
     Route: 048
  10. BELOC [Concomitant]
     Active Substance: METOPROLOL TARTRATE
     Route: 048
  11. ADVAGRAF [Concomitant]
     Active Substance: TACROLIMUS
     Indication: HEART TRANSPLANT
     Route: 048
  12. CALCIUM SANDOZ [Concomitant]
     Active Substance: CALCIUM
     Route: 065

REACTIONS (1)
  - Chronic cutaneous lupus erythematosus [Not Recovered/Not Resolved]

NARRATIVE: CASE EVENT DATE: 201307
